FAERS Safety Report 4767149-5 (Version None)
Quarter: 2005Q3

REPORT INFORMATION
  Report Type: 
  Country: None (occurrence: None)
  Receive Date: 20050913
  Receipt Date: 20041206
  Transmission Date: 20060218
  Serious: Yes (Hospitalization)
  Sender: FDA-Public Use
  Company Number: FR-BRISTOL-MYERS SQUIBB COMPANY-12810255

PATIENT
  Age: 34 Year
  Sex: Female
  Weight: 60 kg

DRUGS (5)
  1. REYATAZ [Suspect]
     Indication: HIV INFECTION
     Route: 048
     Dates: start: 20040701
  2. VIDEX [Suspect]
     Indication: HIV INFECTION
     Route: 048
     Dates: start: 20000101
  3. EPIVIR [Suspect]
     Indication: HIV INFECTION
     Route: 048
     Dates: start: 20041101
  4. NORVIR [Suspect]
     Indication: HIV INFECTION
     Route: 048
     Dates: start: 20040701
  5. VIREAD [Suspect]
     Indication: HIV INFECTION
     Route: 048
     Dates: start: 20020101, end: 20041101

REACTIONS (5)
  - HYPERBILIRUBINAEMIA [None]
  - HYPERTRIGLYCERIDAEMIA [None]
  - NORMAL NEWBORN [None]
  - PANCREATITIS ACUTE [None]
  - PREGNANCY [None]
